FAERS Safety Report 15084072 (Version 2)
Quarter: 2018Q3

REPORT INFORMATION
  Report Type: Spontaneous
  Country: US (occurrence: US)
  Receive Date: 20180628
  Receipt Date: 20180903
  Transmission Date: 20181010
  Serious: No
  Sender: FDA-Public Use
  Company Number: US-TEVA-2018-US-912303

PATIENT
  Age: 73 Year
  Sex: Female

DRUGS (38)
  1. VERAPAMIL (SR) [Concomitant]
  2. CITRUCEL [Concomitant]
     Active Substance: METHYLCELLULOSE (4000 MPA.S)
     Dosage: 2 CAPSULES DAILY
  3. 5?HYDROXYTRYPTOPHAN [Concomitant]
     Active Substance: OXITRIPTAN
     Dosage: 1 AT BEDTIME
  4. NITROSTAT [Concomitant]
     Active Substance: NITROGLYCERIN
     Dosage: 1 AS NEEDED
     Route: 060
  5. POTASSIUM CHLORIDE (ER) [Concomitant]
     Dosage: 20 MICROGRAM DAILY;
  6. NEURONTIN [Concomitant]
     Active Substance: GABAPENTIN
  7. NORCO [Concomitant]
     Active Substance: ACETAMINOPHEN\HYDROCODONE BITARTRATE
     Dosage: 5/325 MG, 1 TABLET 4 TIMES A DAY, PRN
  8. SMZ?TMP [Concomitant]
     Active Substance: SULFAMETHOXAZOLE\TRIMETHOPRIM
     Dosage: 1 TABLET TWICE DAILY
  9. REMERON [Concomitant]
     Active Substance: MIRTAZAPINE
     Dosage: 1 TABLET AT BEDTIME
  10. LIDEX [Concomitant]
     Active Substance: FLUOCINONIDE
     Indication: MOUTH ULCERATION
  11. DESONIDE. [Concomitant]
     Active Substance: DESONIDE
     Indication: PRURITUS
     Dosage: APPLY 2/3 TIMES
  12. D?MANNOSE [Concomitant]
     Dosage: 1 CAPSULE AS NEEDED
  13. HYDRALAZINE HCL [Concomitant]
     Active Substance: HYDRALAZINE HYDROCHLORIDE
     Dosage: 100 MILLIGRAM DAILY;
  14. KLONOPIN [Concomitant]
     Active Substance: CLONAZEPAM
     Dosage: 1/2 TABLET AS NEEDED
  15. AZELASTINE. [Concomitant]
     Active Substance: AZELASTINE HYDROCHLORIDE
     Dosage: 137 MICROGRAM/SPRAY, 1 SPRAY TWICE A DAY
  16. BENTYL [Concomitant]
     Active Substance: DICYCLOMINE HYDROCHLORIDE
  17. FISH OIL [Concomitant]
     Active Substance: FISH OIL
     Dosage: 16000 MICROGRAM DAILY; 4 CAPS DAILY
  18. ALBUTEROL. [Concomitant]
     Active Substance: ALBUTEROL
     Route: 065
  19. HYDROCHLOROTHIAZIDE. [Concomitant]
     Active Substance: HYDROCHLOROTHIAZIDE
     Dosage: 12.5 MILLIGRAM DAILY;
  20. PRILOSEC [Concomitant]
     Active Substance: OMEPRAZOLE MAGNESIUM
     Dosage: 1 CAPSULE BEFORE MEAL
  21. BIOTIN [Concomitant]
     Active Substance: BIOTIN
     Dosage: 1 CAPSULE DAILY
  22. BENADRYL [Concomitant]
     Active Substance: DIPHENHYDRAMINE HYDROCHLORIDE
     Dosage: 2 CAPS WITH GAP OF 4 HRS PRN
  23. CHLOROPHYLL [Concomitant]
  24. MIRALAX [Concomitant]
     Active Substance: POLYETHYLENE GLYCOL 3350
     Dosage: 1 CAPFUL, 1 OR 2 A DAY
  25. ASPIRIN. [Concomitant]
     Active Substance: ASPIRIN
     Dosage: 1 TABLET WITH LUNCH
  26. LOSARTAN/HCTZ [Concomitant]
     Active Substance: HYDROCHLOROTHIAZIDE\LOSARTAN
     Dosage: 1 DOSAGE FORM= LOSARTAN 100 MG/HYDROCHLOROTHIAZIDE 12.5 MG, 1 TABLET IN AM
  27. LIDEX [Concomitant]
     Active Substance: FLUOCINONIDE
     Indication: GINGIVAL ULCERATION
  28. CLOBETASOL [Concomitant]
     Active Substance: CLOBETASOL
     Dosage: APPLY TWICE DAILY PRN
  29. VENTOLIN HFA [Concomitant]
     Active Substance: ALBUTEROL SULFATE
     Dosage: 90 MICROGRAM PER SPRAY, USE 2 INHALATIONS GAP OF 4 HRS. AS NEEDED
  30. LOPRESSOR [Concomitant]
     Active Substance: METOPROLOL TARTRATE
     Dosage: 100 MILLIGRAM DAILY;
  31. ISOSORBIDE. [Concomitant]
     Active Substance: ISOSORBIDE
     Dosage: 60 MILLIGRAM DAILY;
  32. TRAZODONE [Concomitant]
     Active Substance: TRAZODONE HYDROCHLORIDE
     Dosage: 1 TABLET AT B.T.
  33. VITAMIN D3 [Concomitant]
     Active Substance: CHOLECALCIFEROL
     Dosage: ONE 4 TIMES WEEKLY
  34. COQ10 [Concomitant]
     Active Substance: UBIDECARENONE
     Dosage: 50 MILLIGRAM DAILY; 1 A DAY
  35. METFORMIN [Concomitant]
     Active Substance: METFORMIN HYDROCHLORIDE
     Dosage: 1000 MILLIGRAM DAILY;
  36. QVAR REDIHALER [Suspect]
     Active Substance: BECLOMETHASONE DIPROPIONATE
     Indication: ASTHMA
     Dosage: 2 PUFFS TWICE DAILY
     Dates: start: 20180607
  37. FLONASE [Concomitant]
     Active Substance: FLUTICASONE PROPIONATE
     Dosage: 2 SPRAYS P.R.N
  38. HYDROXYZINE [Concomitant]
     Active Substance: HYDROXYZINE HYDROCHLORIDE
     Dosage: 1 TABLET BY MOUTH AT B.T.

REACTIONS (5)
  - Pain [Unknown]
  - Asthenia [Unknown]
  - Oral candidiasis [Unknown]
  - Wrong technique in product usage process [Unknown]
  - Myalgia [Unknown]
